FAERS Safety Report 10681369 (Version 3)
Quarter: 2015Q2

REPORT INFORMATION
  Report Type: Report from Study
  Country: JP (occurrence: JP)
  Receive Date: 20141230
  Receipt Date: 20150522
  Transmission Date: 20150821
  Serious: Yes (Hospitalization)
  Sender: FDA-Public Use
  Company Number: JP-009507513-1412JPN012549

PATIENT
  Age: 62 Year
  Sex: Female
  Weight: 49 kg

DRUGS (20)
  1. REBETOL [Suspect]
     Active Substance: RIBAVIRIN
     Indication: HEPATIC CIRRHOSIS
     Dosage: 400 MG, QD
     Route: 048
     Dates: start: 20120926, end: 20120929
  2. MUCOSOLVAN L [Concomitant]
     Active Substance: AMBROXOL HYDROCHLORIDE
     Indication: BRONCHITIS CHRONIC
     Dosage: 45 MG, QD, FORMULATION: POR
     Route: 048
     Dates: start: 2009
  3. JZOLOFT [Concomitant]
     Active Substance: SERTRALINE HYDROCHLORIDE
     Indication: INSOMNIA
  4. DEPAKENE [Concomitant]
     Active Substance: VALPROIC ACID
     Indication: DEPRESSION
     Dosage: 400 MG, QD, FORMULATION: POR
     Route: 048
     Dates: start: 2009
  5. SORENTMIN (BROTIZOLAM) [Concomitant]
     Indication: INSOMNIA
  6. REBETOL [Suspect]
     Active Substance: RIBAVIRIN
     Dosage: 200 MG, QD
     Route: 048
     Dates: start: 20121007, end: 20121028
  7. THYRADIN-S [Concomitant]
     Active Substance: LEVOTHYROXINE
     Indication: THYROIDITIS CHRONIC
     Dosage: 75? X ONCE/DAY, QD
     Route: 048
     Dates: start: 2009
  8. ACINON [Concomitant]
     Active Substance: NIZATIDINE
     Indication: GASTRODUODENAL ULCER
     Dosage: 150 MG, BID, FORMULATION: POR
     Route: 048
     Dates: start: 20120907
  9. JZOLOFT [Concomitant]
     Active Substance: SERTRALINE HYDROCHLORIDE
     Indication: DEPRESSION
     Dosage: 100 MG, QD, FORMULATION: POR
     Route: 048
     Dates: start: 2009
  10. AZULOXA [Concomitant]
     Indication: GASTRODUODENAL ULCER
     Dosage: 15 MG, BID, FORMULATION: POR
     Route: 048
     Dates: start: 20120907
  11. PEGINTRON [Suspect]
     Active Substance: PEGINTERFERON ALFA-2B
     Indication: HEPATIC CIRRHOSIS
     Dosage: 60 MICROGRAM, QW
     Route: 058
     Dates: start: 20120926, end: 20121107
  12. DEPAKENE [Concomitant]
     Active Substance: VALPROIC ACID
     Indication: INSOMNIA
  13. ALPRAZOLAM. [Concomitant]
     Active Substance: ALPRAZOLAM
     Indication: INSOMNIA
  14. DEPAS [Concomitant]
     Active Substance: ETIZOLAM
     Indication: INSOMNIA
     Dosage: 0.5 MG, QD, FORMULATION: POR
     Route: 048
     Dates: start: 20120927
  15. REBETOL [Suspect]
     Active Substance: RIBAVIRIN
     Dosage: 400 MG, QD
     Route: 048
     Dates: start: 20121029, end: 20121113
  16. REBETOL [Suspect]
     Active Substance: RIBAVIRIN
     Dosage: DAILY DOSAGE UNKNOWN
     Route: 048
     Dates: start: 20121114
  17. SORENTMIN (BROTIZOLAM) [Concomitant]
     Indication: DEPRESSION
     Dosage: 0.25 MG, QD, FORMULATION: POR
     Route: 048
     Dates: start: 2009
  18. LOXONIN [Concomitant]
     Active Substance: LOXOPROFEN SODIUM
     Indication: HEADACHE
     Dosage: 60 MG, QD, FORMULATION: POR
     Route: 048
     Dates: start: 2009
  19. VOLTAREN [Concomitant]
     Active Substance: DICLOFENAC SODIUM
     Indication: PROPHYLAXIS
     Dosage: 25 MG, QD
     Route: 054
     Dates: start: 20120926
  20. ALPRAZOLAM. [Concomitant]
     Active Substance: ALPRAZOLAM
     Indication: DEPRESSION
     Dosage: 0.4 MG, QD, FORMULATION: POR
     Route: 048
     Dates: start: 2009

REACTIONS (3)
  - Depression [Recovering/Resolving]
  - Platelet count decreased [Recovered/Resolved]
  - Pruritus [Recovered/Resolved]

NARRATIVE: CASE EVENT DATE: 20120930
